FAERS Safety Report 8067055-7 (Version None)
Quarter: 2012Q1

REPORT INFORMATION
  Report Type: 
  Country: None (occurrence: None)
  Receive Date: 20120124
  Receipt Date: 20120118
  Transmission Date: 20120608
  Serious: Yes (Hospitalization)
  Sender: FDA-Public Use
  Company Number: US-ACTELION-A-NJ2012-59263

PATIENT

DRUGS (2)
  1. TRACLEER [Suspect]
     Indication: PULMONARY ARTERIAL HYPERTENSION
     Dosage: UNK
     Route: 048
     Dates: start: 20080923
  2. REVATIO [Concomitant]

REACTIONS (5)
  - CARDIAC DISORDER [None]
  - SWELLING [None]
  - CARDIAC PACEMAKER INSERTION [None]
  - DIZZINESS [None]
  - PALPITATIONS [None]
